FAERS Safety Report 12836015 (Version 1)
Quarter: 2016Q4

REPORT INFORMATION
  Report Type: Spontaneous
  Country: US (occurrence: US)
  Receive Date: 20161011
  Receipt Date: 20161011
  Transmission Date: 20170207
  Serious: No
  Sender: FDA-Public Use
  Company Number: US-009507513-1610USA001858

PATIENT
  Age: 13 Year
  Sex: Male
  Weight: 38.2 kg

DRUGS (4)
  1. BUSULFAN. [Interacting]
     Active Substance: BUSULFAN
     Dosage: UNK
     Route: 042
  2. HEXADROL [Suspect]
     Active Substance: DEXAMETHASONE
     Dosage: 6 MG, QD (FOR 48 HOURS PRIOR TO DAILY (BU) BUSULFAN)
  3. BUSULFAN. [Interacting]
     Active Substance: BUSULFAN
     Dosage: 31.8 MG, ONCE
     Route: 042
  4. BUSULFAN. [Interacting]
     Active Substance: BUSULFAN
     Dosage: 1 DF, ONCE (SINGLE, DAILY BU DOSE)
     Route: 042

REACTIONS (1)
  - Drug interaction [Unknown]
